FAERS Safety Report 21853397 (Version 1)
Quarter: 2023Q1

REPORT INFORMATION
  Report Type: Spontaneous
  Country: US (occurrence: None)
  Receive Date: 20230111
  Receipt Date: 20230111
  Transmission Date: 20230417
  Serious: No
  Sender: FDA-Public Use
  Company Number: None

PATIENT
  Age: 44 Year
  Sex: Male

DRUGS (1)
  1. TREMFYA [Suspect]
     Active Substance: GUSELKUMAB
     Indication: Psoriasis
     Dosage: 100 MG EVERY 8 WEEKS SQ?
     Route: 058
     Dates: start: 202110

REACTIONS (2)
  - Device malfunction [None]
  - Product dose omission issue [None]

NARRATIVE: CASE EVENT DATE: 20230108
